FAERS Safety Report 25790286 (Version 2)
Quarter: 2025Q4

REPORT INFORMATION
  Report Type: Spontaneous
  Country: US (occurrence: US)
  Receive Date: 20250911
  Receipt Date: 20251018
  Transmission Date: 20260117
  Serious: No
  Sender: INNOGENIX, LLC
  Company Number: US-Innogenix, LLC-2184276

PATIENT
  Age: 82 Year
  Sex: Female

DRUGS (1)
  1. PROPRANOLOL HYDROCHLORIDE [Suspect]
     Active Substance: PROPRANOLOL HYDROCHLORIDE
     Indication: Product used for unknown indication
     Dates: start: 2025

REACTIONS (3)
  - Neck pain [Unknown]
  - Headache [Unknown]
  - Myalgia [Unknown]

NARRATIVE: CASE EVENT DATE: 20250101
